FAERS Safety Report 9954663 (Version 2)
Quarter: 2014Q1

REPORT INFORMATION
  Report Type: Report from Study
  Country: US (occurrence: US)
  Receive Date: 20140304
  Receipt Date: 20140304
  Transmission Date: 20141002
  Serious: No
  Sender: FDA-Public Use
  Company Number: US-ABBVIE-13P-163-1064054-00

PATIENT
  Age: 76 Year
  Sex: Female

DRUGS (17)
  1. HUMIRA [Suspect]
     Indication: CROHN^S DISEASE
     Dates: start: 20130124
  2. HUMIRA [Suspect]
     Dates: start: 20130510
  3. CLARITIN [Suspect]
  4. LEVOTHYROXINE [Concomitant]
     Indication: HYPOTHYROIDISM
     Dosage: 0.5 MG DAILY
  5. METOPROLOL [Concomitant]
     Indication: HYPERTENSION
  6. MURO 128 [Concomitant]
     Indication: FUCHS^ SYNDROME
  7. FOLIC ACID [Concomitant]
     Indication: PRODUCT USED FOR UNKNOWN INDICATION
     Dosage: 1 MG DAILY
  8. LOMOTIL [Concomitant]
     Indication: DIARRHOEA
     Dosage: 2 MG TWICE DAILY AS NEEDED
  9. VITAMIN B 12 [Concomitant]
     Indication: VITAMIN B12 DECREASED
     Route: 030
  10. CALTRATE D [Concomitant]
     Indication: PRODUCT USED FOR UNKNOWN INDICATION
     Dosage: 1200 MG DAILY
  11. MULTIVITAMIN [Concomitant]
     Indication: PRODUCT USED FOR UNKNOWN INDICATION
     Dosage: DAILY
  12. BONIVA [Concomitant]
     Indication: OSTEOPOROSIS
  13. OCUVITE [Concomitant]
     Indication: MACULAR DEGENERATION
     Dosage: TWICE DAILY
  14. ALIGN [Concomitant]
     Indication: PRODUCT USED FOR UNKNOWN INDICATION
  15. NEXIUM [Concomitant]
     Indication: GASTROOESOPHAGEAL REFLUX DISEASE
  16. FIORICET [Concomitant]
     Indication: HEADACHE
     Dosage: AS NEEDED
  17. AMBIEN [Concomitant]
     Indication: INSOMNIA
     Dosage: 5 MG AS NEEDED

REACTIONS (10)
  - Gastrooesophageal reflux disease [Recovered/Resolved]
  - Headache [Recovered/Resolved]
  - Arthralgia [Recovered/Resolved]
  - Dizziness [Unknown]
  - Dissociation [Unknown]
  - Drug ineffective [Unknown]
  - Diarrhoea [Not Recovered/Not Resolved]
  - Arthralgia [Not Recovered/Not Resolved]
  - Asthenia [Not Recovered/Not Resolved]
  - Crohn^s disease [Unknown]
